FAERS Safety Report 9547519 (Version 2)
Quarter: 2013Q4

REPORT INFORMATION
  Report Type: Report from Study
  Country: DE (occurrence: DE)
  Receive Date: 20130924
  Receipt Date: 20131211
  Transmission Date: 20140711
  Serious: No
  Sender: FDA-Public Use
  Company Number: DE-JNJFOC-20130910032

PATIENT
  Age: 51 Year
  Sex: 0

DRUGS (4)
  1. SIMPONI [Suspect]
     Indication: ANKYLOSING SPONDYLITIS
     Route: 058
     Dates: start: 20130709
  2. SIMPONI [Suspect]
     Indication: ANKYLOSING SPONDYLITIS
     Route: 058
     Dates: start: 20130625
  3. ARCOXIA [Concomitant]
     Route: 065
     Dates: start: 20120626
  4. L THYROXIN [Concomitant]
     Indication: THYROID DISORDER
     Route: 065

REACTIONS (1)
  - Arrhythmia [Recovering/Resolving]
